FAERS Safety Report 10007266 (Version 1)
Quarter: 2014Q1

REPORT INFORMATION
  Report Type: Spontaneous
  Country: US (occurrence: None)
  Receive Date: 20140312
  Receipt Date: 20140312
  Transmission Date: 20141002
  Serious: Yes (Other)
  Sender: FDA-Public Use
  Company Number: None

PATIENT
  Sex: Male

DRUGS (1)
  1. TESTOPEL [Suspect]
     Indication: TESTICULAR FAILURE
     Dosage: 12 PELLETS EVERY 3-5 MONTHS IMPLANTED
     Dates: start: 201206

REACTIONS (2)
  - Implant site infection [None]
  - Device expulsion [None]
